FAERS Safety Report 14699187 (Version 2)
Quarter: 2020Q3

REPORT INFORMATION
  Report Type: Report from Study
  Country: ES (occurrence: ES)
  Receive Date: 20180330
  Receipt Date: 20180405
  Transmission Date: 20201105
  Serious: Yes (Hospitalization)
  Sender: FDA-Public Use
  Company Number: US-ASTRAZENECA-2018SE36632

PATIENT
  Age: 25808 Day
  Sex: Female
  Weight: 45 kg

DRUGS (2)
  1. MEDI4736 [Suspect]
     Active Substance: DURVALUMAB
     Indication: PANCREATIC NEUROENDOCRINE TUMOUR
     Route: 042
     Dates: start: 20171108
  2. TREMELIMUMAB. [Suspect]
     Active Substance: TREMELIMUMAB
     Indication: PANCREATIC NEUROENDOCRINE TUMOUR
     Route: 042
     Dates: start: 20171108

REACTIONS (5)
  - Vomiting [Recovered/Resolved]
  - Diarrhoea [Recovered/Resolved]
  - Gamma-glutamyltransferase increased [Recovered/Resolved]
  - Alanine aminotransferase increased [Recovered/Resolved]
  - Aspartate aminotransferase increased [Recovered/Resolved]

NARRATIVE: CASE EVENT DATE: 20180320
